FAERS Safety Report 24064074 (Version 1)
Quarter: 2024Q3

REPORT INFORMATION
  Report Type: Spontaneous
  Country: IN (occurrence: IN)
  Receive Date: 20240709
  Receipt Date: 20240709
  Transmission Date: 20241017
  Serious: Yes (Hospitalization, Other)
  Sender: RANBAXY
  Company Number: IN-SUN PHARMACEUTICAL INDUSTRIES LTD-2024R1-455255

PATIENT
  Age: 3 Decade
  Sex: Male

DRUGS (3)
  1. DOXYCYCLINE [Suspect]
     Active Substance: DOXYCYCLINE\DOXYCYCLINE HYCLATE
     Indication: Scrub typhus
     Dosage: 200 MILLIGRAM
     Route: 065
  2. DOXYCYCLINE [Suspect]
     Active Substance: DOXYCYCLINE\DOXYCYCLINE HYCLATE
     Dosage: 100 MILLIGRAM, BID
     Route: 065
  3. DEVICE [Suspect]
     Active Substance: DEVICE
     Indication: General physical health deterioration
     Dosage: UNK
     Route: 065

REACTIONS (1)
  - Condition aggravated [Unknown]
